FAERS Safety Report 17931278 (Version 2)
Quarter: 2020Q2

REPORT INFORMATION
  Report Type: Spontaneous
  Country: DE (occurrence: DE)
  Receive Date: 20200623
  Receipt Date: 20200630
  Transmission Date: 20200714
  Serious: Yes (Hospitalization, Other)
  Sender: FDA-Public Use
  Company Number: NVSC2020DE044140

PATIENT
  Age: 84 Year
  Sex: Female
  Weight: 97 kg

DRUGS (9)
  1. RAMIPRIL. [Concomitant]
     Active Substance: RAMIPRIL
     Indication: PRODUCT USED FOR UNKNOWN INDICATION
     Dosage: 5 MG, BID (1-0-1)
     Route: 065
  2. TORASEMIDE [Concomitant]
     Active Substance: TORSEMIDE
     Indication: PRODUCT USED FOR UNKNOWN INDICATION
     Dosage: 2.5 MG, BID (1-1-0)
     Route: 065
  3. RIVAROXABAN [Suspect]
     Active Substance: RIVAROXABAN
     Indication: ATRIAL FIBRILLATION
     Dosage: NACH INR
     Route: 048
     Dates: start: 201806, end: 20191113
  4. DIHYDRALAZINE [Concomitant]
     Active Substance: DIHYDRALAZINE
     Indication: PRODUCT USED FOR UNKNOWN INDICATION
     Dosage: 25 MG, QD (1-0-0)
     Route: 065
  5. TAMOXIFEN [Concomitant]
     Active Substance: TAMOXIFEN
     Indication: BREAST CANCER
     Dosage: 20 MG, QD (1-0-0)
     Route: 065
  6. OMEPRAZOLE. [Concomitant]
     Active Substance: OMEPRAZOLE
     Indication: PRODUCT USED FOR UNKNOWN INDICATION
     Dosage: 40 MG, QD (1-0-0)
     Route: 065
  7. AMLODIPINE [Concomitant]
     Active Substance: AMLODIPINE BESYLATE
     Indication: PRODUCT USED FOR UNKNOWN INDICATION
     Dosage: 5 MG, BID (1-0-1)
     Route: 065
  8. AMIODARONE [Suspect]
     Active Substance: AMIODARONE
     Indication: PRODUCT USED FOR UNKNOWN INDICATION
     Dosage: UNK
     Route: 065
  9. L-THYROXINE [Concomitant]
     Active Substance: LEVOTHYROXINE
     Indication: PRODUCT USED FOR UNKNOWN INDICATION
     Dosage: 200 UG, QD (1-0-0)
     Route: 065

REACTIONS (20)
  - Fall [Unknown]
  - Diplopia [Unknown]
  - Vascular malformation [Unknown]
  - Brain stem infarction [Unknown]
  - Arteriosclerosis [Unknown]
  - Supraventricular extrasystoles [Unknown]
  - Nausea [Unknown]
  - Bradycardia [Unknown]
  - Subgaleal haematoma [Unknown]
  - Cerebral haemorrhage [Recovering/Resolving]
  - Headache [Unknown]
  - Dysmetria [Unknown]
  - Ventricular extrasystoles [Unknown]
  - Hemiparesis [Unknown]
  - Hypertension [Recovering/Resolving]
  - Cerebral atrophy [Unknown]
  - Dysarthria [Unknown]
  - Dysphagia [Unknown]
  - Muscular weakness [Unknown]
  - Vomiting [Unknown]

NARRATIVE: CASE EVENT DATE: 201911
